FAERS Safety Report 21769147 (Version 1)
Quarter: 2022Q4

REPORT INFORMATION
  Report Type: Report from Study
  Country: CA (occurrence: CA)
  Receive Date: 20221222
  Receipt Date: 20221222
  Transmission Date: 20230113
  Serious: Yes (Other)
  Sender: FDA-Public Use
  Company Number: CA-CELLTRION INC.-2022CA021475

PATIENT

DRUGS (1)
  1. TRUXIMA [Suspect]
     Active Substance: RITUXIMAB-ABBS
     Indication: Cold type haemolytic anaemia
     Dosage: 67.5 MILLILITER IV WEEKLY (DISPENSE/ SUPPLY:337. 5 ML)
     Route: 042

REACTIONS (2)
  - Cold type haemolytic anaemia [Unknown]
  - Off label use [Unknown]
